FAERS Safety Report 11823309 (Version 2)
Quarter: 2015Q4

REPORT INFORMATION
  Report Type: Spontaneous
  Country: US (occurrence: US)
  Receive Date: 20151210
  Receipt Date: 20151210
  Transmission Date: 20160305
  Serious: No
  Sender: FDA-Public Use
  Company Number: US-APOTEX-2014AP005212

PATIENT

DRUGS (1)
  1. FENTANYL TRANSDERMAL SYSTEM [Suspect]
     Active Substance: FENTANYL
     Indication: PAIN
     Dosage: 25 ?G, Q.H.
     Route: 062
     Dates: start: 2014

REACTIONS (3)
  - Underdose [Unknown]
  - Drug ineffective [Unknown]
  - Product adhesion issue [Unknown]
